FAERS Safety Report 4481378-X (Version None)
Quarter: 2004Q4

REPORT INFORMATION
  Report Type: 
  Country: None (occurrence: None)
  Receive Date: 20040923
  Receipt Date: 20040712
  Transmission Date: 20050328
  Serious: No
  Sender: FDA-Public Use
  Company Number: USA031152161

PATIENT
  Age: 79 Year
  Sex: Female
  Weight: 35 kg

DRUGS (1)
  1. FORTEO [Suspect]
     Indication: OSTEOPOROSIS
     Dosage: 20 UG/L DAY
     Dates: start: 20030401

REACTIONS (4)
  - BALANCE DISORDER [None]
  - BLOOD GLUCOSE INCREASED [None]
  - DIZZINESS [None]
  - NERVOUSNESS [None]
